FAERS Safety Report 10477186 (Version 5)
Quarter: 2017Q4

REPORT INFORMATION
  Report Type: Report from Study
  Country: US (occurrence: US)
  Receive Date: 20140926
  Receipt Date: 20171108
  Transmission Date: 20180320
  Serious: Yes (Hospitalization, Other)
  Sender: FDA-Public Use
  Company Number: US-AMGEN INC.-USASP2014072336

PATIENT
  Age: 59 Year
  Sex: Male

DRUGS (2)
  1. ENBREL [Suspect]
     Active Substance: ETANERCEPT
     Indication: RHEUMATOID ARTHRITIS
     Dosage: 25 MG, 2 TIMES/WK
     Route: 065
     Dates: start: 20120312, end: 201306
  2. ENBREL [Suspect]
     Active Substance: ETANERCEPT
     Dosage: 25 MG, 2 TIMES/WK
     Route: 065
     Dates: start: 201309, end: 201406

REACTIONS (11)
  - Wound haemorrhage [Not Recovered/Not Resolved]
  - Surgery [Unknown]
  - Spinal operation [Unknown]
  - Hip arthroplasty [Unknown]
  - Haematoma [Recovered/Resolved]
  - Hip surgery [Not Recovered/Not Resolved]
  - Impaired healing [Unknown]
  - Limb operation [Unknown]
  - Wheelchair user [Not Recovered/Not Resolved]
  - Post procedural complication [Unknown]
  - Infection [Not Recovered/Not Resolved]

NARRATIVE: CASE EVENT DATE: 201306
